FAERS Safety Report 10162403 (Version 1)
Quarter: 2014Q2

REPORT INFORMATION
  Report Type: Spontaneous
  Country: US (occurrence: US)
  Receive Date: 20140509
  Receipt Date: 20140509
  Transmission Date: 20141212
  Serious: No
  Sender: FDA-Public Use
  Company Number: US-GLAXOSMITHKLINE-A1027994A

PATIENT
  Age: 70 Year
  Sex: Female

DRUGS (5)
  1. BACTROBAN [Suspect]
     Indication: STAPHYLOCOCCAL INFECTION
     Route: 045
     Dates: start: 201306
  2. THYROID [Concomitant]
  3. HORMONES [Concomitant]
  4. DESYREL [Concomitant]
  5. ATIVAN [Concomitant]

REACTIONS (5)
  - Oral discomfort [Recovered/Resolved]
  - Application site pain [Recovered/Resolved]
  - Cheilitis [Recovered/Resolved]
  - Erythema [Recovered/Resolved]
  - Skin irritation [Recovered/Resolved]
